FAERS Safety Report 4547259-8 (Version None)
Quarter: 2005Q1

REPORT INFORMATION
  Report Type: 
  Country: None (occurrence: None)
  Receive Date: 20050105
  Receipt Date: 20041216
  Transmission Date: 20050727
  Serious: Yes (Other)
  Sender: FDA-Public Use
  Company Number: US_0412109448

PATIENT
  Age: 35 Year
  Sex: Female
  Weight: 108 kg

DRUGS (1)
  1. DULOXETINE HYDROCHLORIDE [Suspect]
     Indication: MAJOR DEPRESSION
     Dosage: 60 MG/D
     Dates: start: 20040909, end: 20041111

REACTIONS (7)
  - DISORDER OF ORBIT [None]
  - EYE PAIN [None]
  - EYE SWELLING [None]
  - MASS [None]
  - NUCLEAR MAGNETIC RESONANCE IMAGING BRAIN ABNORMAL [None]
  - PERIORBITAL DISORDER [None]
  - VISUAL FIELD DEFECT [None]
